FAERS Safety Report 9734458 (Version 2)
Quarter: 2014Q1

REPORT INFORMATION
  Report Type: Spontaneous
  Country: DE (occurrence: DE)
  Receive Date: 20131206
  Receipt Date: 20140207
  Transmission Date: 20141002
  Serious: Yes (Other)
  Sender: FDA-Public Use
  Company Number: DE-BIOGENIDEC-2013BI025292

PATIENT
  Age: 38 Year
  Sex: Female
  Weight: 50 kg

DRUGS (2)
  1. AVONEX [Suspect]
     Indication: MULTIPLE SCLEROSIS
     Route: 030
     Dates: start: 20060301, end: 20130306
  2. IBUPROFEN [Concomitant]
     Indication: PROPHYLAXIS
     Route: 048
     Dates: start: 20060301, end: 20130306

REACTIONS (4)
  - Caesarean section [Recovered/Resolved]
  - Cervix cerclage procedure [Recovered/Resolved]
  - Premature labour [Recovered/Resolved]
  - Threatened labour [Recovered/Resolved]
